FAERS Safety Report 19560597 (Version 8)
Quarter: 2022Q3

REPORT INFORMATION
  Report Type: Report from Study
  Country: DE (occurrence: None)
  Receive Date: 20210715
  Receipt Date: 20220913
  Transmission Date: 20221026
  Serious: Yes (Death, Hospitalization)
  Sender: FDA-Public Use
  Company Number: DE-ROCHE-2857843

PATIENT
  Age: 69 Year
  Sex: Male
  Weight: 70 kg

DRUGS (31)
  1. ATEZOLIZUMAB [Suspect]
     Active Substance: ATEZOLIZUMAB
     Indication: Renal cell carcinoma
     Dosage: ON 06/APR/2021, HE RECEIVED MOST RECENT DOSE OF ATEZOLIZUMAB (1200 MG) PRIOR TO ONSET OF ELEVATED CR
     Route: 041
     Dates: start: 20201222
  2. CABOZANTINIB [Suspect]
     Active Substance: CABOZANTINIB
     Indication: Renal cell carcinoma
     Dosage: ON 26/APR/2021, HE RECEIVED MOST RECENT DOSE OF CABOZANTINIB (20 MG) PRIOR TO ONSET OF ADVERSE EVENT
     Route: 048
     Dates: start: 20201222
  3. RAMIPRIL [Concomitant]
     Active Substance: RAMIPRIL
     Indication: Hypertension
     Route: 048
     Dates: start: 20170101, end: 20210626
  4. METOPROLOL [Concomitant]
     Active Substance: METOPROLOL
     Indication: Atrial fibrillation
     Route: 048
     Dates: start: 20170101
  5. ELIQUIS [Concomitant]
     Active Substance: APIXABAN
     Indication: Atrial fibrillation
     Route: 048
     Dates: start: 20170101
  6. CANDESARTAN [Concomitant]
     Active Substance: CANDESARTAN
     Indication: Hypertension
     Route: 048
     Dates: start: 20210119, end: 20210625
  7. PREDNISONE [Concomitant]
     Active Substance: PREDNISONE
     Indication: Palmar-plantar erythrodysaesthesia syndrome
     Route: 048
     Dates: start: 20210417, end: 20210418
  8. PREDNISONE [Concomitant]
     Active Substance: PREDNISONE
     Indication: Nephritis
     Route: 048
     Dates: start: 20210419, end: 20210420
  9. PREDNISONE [Concomitant]
     Active Substance: PREDNISONE
     Route: 048
     Dates: start: 20210413, end: 20210416
  10. PREDNISONE [Concomitant]
     Active Substance: PREDNISONE
     Route: 048
     Dates: start: 20210518, end: 20210607
  11. PREDNISONE [Concomitant]
     Active Substance: PREDNISONE
     Route: 048
     Dates: start: 20210608, end: 20210616
  12. PREDNISONE [Concomitant]
     Active Substance: PREDNISONE
     Route: 048
     Dates: start: 20210617, end: 20210621
  13. PANTOPRAZOLE [Concomitant]
     Active Substance: PANTOPRAZOLE
     Route: 048
     Dates: start: 20210406, end: 20210420
  14. METHYLPREDNISOLONE [Concomitant]
     Active Substance: METHYLPREDNISOLONE
     Indication: Palmar-plantar erythrodysaesthesia syndrome
     Route: 048
     Dates: start: 20210503, end: 20210513
  15. METHYLPREDNISOLONE [Concomitant]
     Active Substance: METHYLPREDNISOLONE
     Indication: Nephritis
     Route: 042
     Dates: start: 20210622, end: 20210701
  16. METHYLPREDNISOLONE [Concomitant]
     Active Substance: METHYLPREDNISOLONE
     Route: 042
     Dates: start: 20210625
  17. SODIUM BICARBONATE [Concomitant]
     Active Substance: SODIUM BICARBONATE
     Indication: Nephritis
     Route: 048
     Dates: start: 20210622, end: 20210625
  18. METHIMAZOLE [Concomitant]
     Active Substance: METHIMAZOLE
     Indication: Fatigue
     Route: 048
     Dates: start: 20210310, end: 20210406
  19. METHIMAZOLE [Concomitant]
     Active Substance: METHIMAZOLE
     Indication: Decreased appetite
  20. METHIMAZOLE [Concomitant]
     Active Substance: METHIMAZOLE
     Indication: Weight decreased
  21. DIMETHINDENE [Concomitant]
     Active Substance: DIMETHINDENE
     Indication: Palmar-plantar erythrodysaesthesia syndrome
     Route: 062
     Dates: start: 20210406, end: 20210409
  22. IBUPROFEN [Concomitant]
     Active Substance: IBUPROFEN
     Indication: Palmar-plantar erythrodysaesthesia syndrome
     Route: 048
     Dates: start: 20210406, end: 20210409
  23. PROTOPIC [Concomitant]
     Active Substance: TACROLIMUS
     Indication: Palmar-plantar erythrodysaesthesia syndrome
     Route: 062
     Dates: start: 20210409, end: 20210412
  24. LEVOTHYROXINE SODIUM [Concomitant]
     Active Substance: LEVOTHYROXINE SODIUM
     Indication: Hypothyroidism
     Route: 048
     Dates: start: 20210617
  25. AMLODIPINE BESYLATE [Concomitant]
     Active Substance: AMLODIPINE BESYLATE
     Indication: Hypertension
     Route: 048
     Dates: start: 20210626
  26. AMIODARONE [Concomitant]
     Active Substance: AMIODARONE
     Indication: Hypertension
     Route: 048
     Dates: start: 20210701
  27. AMIODARONE [Concomitant]
     Active Substance: AMIODARONE
     Route: 042
     Dates: start: 20210727, end: 20210728
  28. CANDESARTAN [Concomitant]
     Active Substance: CANDESARTAN
     Route: 048
     Dates: start: 20210626
  29. PANTOPRAZOLE SODIUM [Concomitant]
     Active Substance: PANTOPRAZOLE SODIUM
     Route: 048
     Dates: start: 20210413
  30. CIPROFLOXACIN [Concomitant]
     Active Substance: CIPROFLOXACIN
     Indication: Urinary tract infection
     Route: 048
     Dates: start: 20210629, end: 20210707
  31. VANCOMYCIN [Concomitant]
     Active Substance: VANCOMYCIN
     Route: 042
     Dates: start: 20210728

REACTIONS (2)
  - Renal failure [Fatal]
  - Renal failure [Fatal]

NARRATIVE: CASE EVENT DATE: 20210427
